FAERS Safety Report 19223117 (Version 2)
Quarter: 2023Q2

REPORT INFORMATION
  Report Type: Spontaneous
  Country: US (occurrence: None)
  Receive Date: 20210505
  Receipt Date: 20230420
  Transmission Date: 20230722
  Serious: No
  Sender: FDA-Public Use
  Company Number: US-ROCHE-2710781

PATIENT
  Age: 78 Year
  Sex: Male

DRUGS (4)
  1. ESBRIET [Suspect]
     Active Substance: PIRFENIDONE
     Indication: Idiopathic pulmonary fibrosis
     Dosage: 267 MG 1 TAB 3 TIMES A DAY FOR WEEK 1
     Route: 048
     Dates: start: 20201023
  2. ESBRIET [Suspect]
     Active Substance: PIRFENIDONE
     Dosage: 267MG 2 TABS 3 TIMES A DAY FOR WEEK 2
     Route: 048
  3. ESBRIET [Suspect]
     Active Substance: PIRFENIDONE
     Dosage: 267 MG 3 TABS 3 TIMES A DAY FOR WEEK 3
     Route: 048
  4. ESBRIET [Suspect]
     Active Substance: PIRFENIDONE
     Route: 048
     Dates: start: 20201023

REACTIONS (8)
  - Diarrhoea [Not Recovered/Not Resolved]
  - Fatigue [Unknown]
  - Weight decreased [Unknown]
  - Illness [Unknown]
  - Nausea [Unknown]
  - Gait disturbance [Unknown]
  - Speech disorder [Unknown]
  - Dyspnoea [Unknown]

NARRATIVE: CASE EVENT DATE: 20220610
